FAERS Safety Report 12413056 (Version 3)
Quarter: 2016Q3

REPORT INFORMATION
  Report Type: Report from Study
  Country: GB (occurrence: GB)
  Receive Date: 20160527
  Receipt Date: 20160811
  Transmission Date: 20161109
  Serious: Yes (Hospitalization)
  Sender: FDA-Public Use
  Company Number: GB-ABBVIE-16P-167-1635752-00

PATIENT
  Age: 68 Year
  Sex: Male

DRUGS (1)
  1. DUODOPA [Suspect]
     Active Substance: CARBIDOPA\LEVODOPA
     Indication: PARKINSON^S DISEASE
     Dosage: 2.2 CONT. 1X100ML CASSETTE, 2.3 ML/HOUR
     Route: 050
     Dates: start: 2007

REACTIONS (12)
  - Vomiting [Unknown]
  - Hyporeflexia [Unknown]
  - White blood cell count increased [Unknown]
  - Intentional device misuse [Unknown]
  - Sputum discoloured [Unknown]
  - Incorrect drug administration duration [Unknown]
  - Lower respiratory tract infection [Unknown]
  - C-reactive protein increased [Unknown]
  - Drug effect incomplete [Unknown]
  - Pneumonia aspiration [Recovered/Resolved]
  - Productive cough [Unknown]
  - Cough [Unknown]

NARRATIVE: CASE EVENT DATE: 201510
